FAERS Safety Report 12101016 (Version 10)
Quarter: 2018Q4

REPORT INFORMATION
  Report Type: Report from Study
  Country: US (occurrence: US)
  Receive Date: 20160222
  Receipt Date: 20181115
  Transmission Date: 20190204
  Serious: Yes (Hospitalization, Other)
  Sender: FDA-Public Use
  Company Number: US-ACTELION-A-NJ2014-98517

PATIENT
  Age: 62 Year
  Sex: Female
  Weight: 64.85 kg

DRUGS (11)
  1. LETAIRIS [Suspect]
     Active Substance: AMBRISENTAN
     Indication: PULMONARY HYPERTENSION
     Dosage: 10 MG, QD
     Route: 065
     Dates: start: 20140109
  2. VELETRI [Suspect]
     Active Substance: EPOPROSTENOL
     Dosage: 22 NG/KG, PER MIN
     Route: 042
  3. COUMADIN [Suspect]
     Active Substance: WARFARIN SODIUM
     Indication: PRODUCT USED FOR UNKNOWN INDICATION
     Route: 065
  4. TYVASO [Concomitant]
     Active Substance: TREPROSTINIL
  5. OXYGEN. [Concomitant]
     Active Substance: OXYGEN
     Dosage: 5 L, UNK
  6. VELETRI [Suspect]
     Active Substance: EPOPROSTENOL
     Indication: PULMONARY ARTERIAL HYPERTENSION
     Dosage: 32.5 NG/KG, PER MIN
     Route: 042
  7. VELETRI [Suspect]
     Active Substance: EPOPROSTENOL
     Dosage: 25 NG/KG, PER MIN
     Route: 042
     Dates: start: 20140425
  8. VELETRI [Suspect]
     Active Substance: EPOPROSTENOL
     Dosage: 24 NG/KG, PER MIN
     Route: 042
  9. XIFAXAN [Concomitant]
     Active Substance: RIFAXIMIN
  10. VELETRI [Suspect]
     Active Substance: EPOPROSTENOL
     Dosage: UNK
     Route: 042
  11. ADCIRCA [Suspect]
     Active Substance: TADALAFIL
     Indication: PRODUCT USED FOR UNKNOWN INDICATION
     Route: 065

REACTIONS (29)
  - Weight decreased [Unknown]
  - Asthenia [Unknown]
  - Flushing [Unknown]
  - Nausea [Unknown]
  - Oxygen therapy [Unknown]
  - Cholecystitis [Unknown]
  - Gallbladder disorder [Unknown]
  - Pruritus [Unknown]
  - Diarrhoea [Unknown]
  - Pain in jaw [Unknown]
  - Feeling hot [Unknown]
  - Fall [Unknown]
  - Influenza like illness [Unknown]
  - Fatigue [Unknown]
  - Hot flush [Unknown]
  - Cough [Unknown]
  - Erythema [Unknown]
  - Abdominal pain upper [Unknown]
  - Dyspnoea exertional [Recovering/Resolving]
  - Palpitations [Not Recovered/Not Resolved]
  - Dry skin [Unknown]
  - Dyspnoea [Not Recovered/Not Resolved]
  - Decreased appetite [Unknown]
  - Depression [Unknown]
  - Weight increased [Recovered/Resolved]
  - Syncope [Unknown]
  - Somnolence [Unknown]
  - Presyncope [Unknown]
  - Hypotonia [Unknown]

NARRATIVE: CASE EVENT DATE: 20140428
